FAERS Safety Report 6833341-9 (Version None)
Quarter: 2010Q3

REPORT INFORMATION
  Report Type: 
  Country: None (occurrence: None)
  Receive Date: 20100712
  Receipt Date: 20100708
  Transmission Date: 20110219
  Serious: Yes (Death, Life-Threatening, Hospitalization, Other)
  Sender: FDA-Public Use
  Company Number: PHHO2010NL09032

PATIENT
  Sex: Male
  Weight: 54.3 kg

DRUGS (4)
  1. ACZ885 ACZ+ [Suspect]
     Indication: JUVENILE ARTHRITIS
     Dosage: 4MG / KG (230 MG)
     Route: 058
     Dates: start: 20100412, end: 20100609
  2. PREDNISONE [Concomitant]
     Indication: HISTIOCYTOSIS HAEMATOPHAGIC
  3. METHOTREXATE [Concomitant]
  4. INDOMETHACIN [Concomitant]

REACTIONS (14)
  - ABNORMAL BEHAVIOUR [None]
  - COMPUTERISED TOMOGRAM ABNORMAL [None]
  - CONVULSION [None]
  - DISORIENTATION [None]
  - HISTIOCYTOSIS HAEMATOPHAGIC [None]
  - HYPOTENSION [None]
  - LUNG INFILTRATION [None]
  - MECHANICAL VENTILATION [None]
  - PULMONARY HYPERTENSION [None]
  - PYREXIA [None]
  - SOMNOLENCE [None]
  - TACHYPNOEA [None]
  - THROMBOCYTOPENIA [None]
  - VENOOCCLUSIVE DISEASE [None]
